FAERS Safety Report 8888490 (Version 1)
Quarter: 2012Q4

REPORT INFORMATION
  Report Type: 
  Country: ES (occurrence: ES)
  Receive Date: 20121106
  Receipt Date: 20121106
  Transmission Date: 20130627
  Serious: Yes (Other)
  Sender: FDA-Public Use
  Company Number: ES-UCBSA-070141

PATIENT
  Age: 28 Year
  Sex: Male

DRUGS (6)
  1. KEPPRA [Suspect]
     Indication: STATUS EPILEPTICUS
     Dosage: STRENGTH: 100MG/ML
     Route: 042
     Dates: start: 20120720, end: 20120723
  2. AUGMENTINE [Suspect]
     Dosage: STRENGTH: 1000MG/ML
     Route: 042
     Dates: start: 20120720, end: 20120723
  3. SODIUM VALPROIC [Concomitant]
     Indication: STATUS EPILEPTICUS
     Dates: start: 20120720
  4. CLONAZEPAM [Concomitant]
     Dates: start: 20120720, end: 20120720
  5. MIDAZOLAM [Concomitant]
     Dates: start: 20120720, end: 20120720
  6. FENTANYL [Concomitant]
     Dates: start: 20120720, end: 20120720

REACTIONS (1)
  - Renal failure acute [Recovered/Resolved]
